FAERS Safety Report 13917380 (Version 5)
Quarter: 2017Q4

REPORT INFORMATION
  Report Type: Spontaneous
  Country: JP (occurrence: JP)
  Receive Date: 20170829
  Receipt Date: 20171025
  Transmission Date: 20180320
  Serious: Yes (Hospitalization, Other)
  Sender: FDA-Public Use
  Company Number: JP-GLAXOSMITHKLINE-JP2017JPN131705

PATIENT
  Age: 82 Year
  Sex: Female
  Weight: 42 kg

DRUGS (5)
  1. BONOTEO [Concomitant]
     Active Substance: MINODRONIC ACID
     Dosage: 50 MG, 1D
  2. LOXONIN [Concomitant]
     Active Substance: LOXOPROFEN SODIUM
     Dosage: 120 MG, 1D
  3. OLMETEC [Suspect]
     Active Substance: OLMESARTAN MEDOXOMIL
     Indication: HYPERTENSION
     Dosage: 10 MG, 1D
     Route: 048
  4. MOSAPRIDE CITRATE HYDRATE [Concomitant]
     Active Substance: MOSAPRIDE CITRATE DIHYDRATE
     Dosage: 15 MG, 1D
  5. VALTREX [Suspect]
     Active Substance: VALACYCLOVIR HYDROCHLORIDE
     Indication: HERPES ZOSTER
     Dosage: 3000 MG, 1D
     Route: 048
     Dates: start: 20170821, end: 20170823

REACTIONS (8)
  - Altered state of consciousness [Recovered/Resolved with Sequelae]
  - Toxic encephalopathy [Recovered/Resolved with Sequelae]
  - Toxicity to various agents [Unknown]
  - Drug level increased [Unknown]
  - Disuse syndrome [Unknown]
  - Renal disorder [Unknown]
  - Delirium [Unknown]
  - Fall [Unknown]

NARRATIVE: CASE EVENT DATE: 20170823
